FAERS Safety Report 6883814-8 (Version None)
Quarter: 2010Q3

REPORT INFORMATION
  Report Type: 
  Country: None (occurrence: None)
  Receive Date: 20100727
  Receipt Date: 20100714
  Transmission Date: 20110219
  Serious: Yes (Other)
  Sender: FDA-Public Use
  Company Number: US-BAYER-201021440GPV

PATIENT
  Age: 22 Year
  Sex: Male
  Weight: 57 kg

DRUGS (11)
  1. CAMPATH [Suspect]
     Indication: RENAL TRANSPLANT
     Dosage: 2 HOURS INFUSION TIME
     Route: 042
  2. CLONIDINE [Concomitant]
  3. LISINOPRIL [Concomitant]
  4. AMLODIPINE [Concomitant]
  5. METHYLPREDNISOLONE [Concomitant]
     Indication: RENAL TRANSPLANT
     Route: 042
  6. DIPHENHYDRAMINE [Concomitant]
     Indication: RENAL TRANSPLANT
     Route: 042
  7. FAMOTIDINE [Concomitant]
     Indication: RENAL TRANSPLANT
     Route: 042
  8. ACETAMINOPHEN [Concomitant]
     Indication: RENAL TRANSPLANT
     Route: 048
  9. DOPAMINE HCL [Concomitant]
     Indication: BLOOD PRESSURE SYSTOLIC DECREASED
     Dosage: 3 MCG/KG/MIN
  10. FUROSEMIDE [Concomitant]
     Route: 042
  11. MANNITOL [Concomitant]
     Route: 042

REACTIONS (2)
  - PNEUMONITIS [None]
  - PULMONARY OEDEMA [None]
